FAERS Safety Report 15456151 (Version 4)
Quarter: 2019Q1

REPORT INFORMATION
  Report Type: Spontaneous
  Country: US (occurrence: US)
  Receive Date: 20181002
  Receipt Date: 20190102
  Transmission Date: 20190417
  Serious: Yes (Other)
  Sender: FDA-Public Use
  Company Number: US-SA-2018SA266627

PATIENT
  Age: 70 Year
  Sex: Female

DRUGS (1)
  1. AMBIEN CR [Suspect]
     Active Substance: ZOLPIDEM TARTRATE
     Indication: SLEEP DISORDER
     Dosage: 12.5 MG, HS

REACTIONS (3)
  - Therapeutic response decreased [Unknown]
  - Drug dependence [Unknown]
  - Drug ineffective [Unknown]

NARRATIVE: CASE EVENT DATE: 20180915
